FAERS Safety Report 26065476 (Version 1)
Quarter: 2025Q4

REPORT INFORMATION
  Report Type: Spontaneous
  Country: EU (occurrence: EU)
  Receive Date: 20251119
  Receipt Date: 20251119
  Transmission Date: 20260118
  Serious: Yes (Other)
  Sender: AMGEN
  Company Number: EU-AMGEN-GRCSP2025224187

PATIENT
  Age: 59 Year
  Sex: Male

DRUGS (6)
  1. XGEVA [Suspect]
     Active Substance: DENOSUMAB
     Indication: Thyroid cancer
     Dosage: 120 MILLIGRAM, QMO
     Route: 065
  2. XGEVA [Suspect]
     Active Substance: DENOSUMAB
     Indication: Poorly differentiated thyroid carcinoma
  3. LENVATINIB [Concomitant]
     Active Substance: LENVATINIB
     Indication: Poorly differentiated thyroid carcinoma
     Dosage: 20 MILLIGRAM, QD
  4. LENVATINIB [Concomitant]
     Active Substance: LENVATINIB
     Indication: Thyroid cancer
  5. PEMBROLIZUMAB [Concomitant]
     Active Substance: PEMBROLIZUMAB
     Indication: Poorly differentiated thyroid carcinoma
     Dosage: 200 MILLIGRAM, Q3WK
  6. PEMBROLIZUMAB [Concomitant]
     Active Substance: PEMBROLIZUMAB
     Indication: Thyroid cancer

REACTIONS (5)
  - Metastases to lymph nodes [Unknown]
  - Bone lesion [Unknown]
  - Vertebral lesion [Unknown]
  - Drug effective for unapproved indication [Unknown]
  - Off label use [Unknown]
